FAERS Safety Report 5954567-2 (Version None)
Quarter: 2008Q4

REPORT INFORMATION
  Report Type: 
  Country: None (occurrence: None)
  Receive Date: 20081117
  Receipt Date: 20081105
  Transmission Date: 20090506
  Serious: Yes (Hospitalization)
  Sender: FDA-Public Use
  Company Number: US-BIOGENIDEC-2005BI017642

PATIENT
  Age: 56 Year
  Sex: Female
  Weight: 60 kg

DRUGS (5)
  1. AVONEX [Suspect]
     Indication: MULTIPLE SCLEROSIS
     Route: 030
     Dates: start: 20010103
  2. AVONEX [Suspect]
     Route: 030
  3. TOPROL-XL [Concomitant]
     Indication: HYPOTHYROIDISM
  4. PREMARIN [Concomitant]
     Indication: DRUG USE FOR UNKNOWN INDICATION
  5. ATROVENT [Concomitant]
     Indication: CHRONIC OBSTRUCTIVE PULMONARY DISEASE

REACTIONS (8)
  - HYPERTHYROIDISM [None]
  - HYSTERECTOMY [None]
  - INTRACRANIAL ANEURYSM [None]
  - PLEURAL EFFUSION [None]
  - RENAL CELL CARCINOMA [None]
  - ROAD TRAFFIC ACCIDENT [None]
  - VOMITING [None]
  - WEIGHT DECREASED [None]
